FAERS Safety Report 8066291-3 (Version None)
Quarter: 2012Q1

REPORT INFORMATION
  Report Type: 
  Country: None (occurrence: None)
  Receive Date: 20120124
  Receipt Date: 20120117
  Transmission Date: 20120608
  Serious: Yes (Hospitalization)
  Sender: FDA-Public Use
  Company Number: US-PFIZER INC-2012014648

PATIENT
  Sex: Female

DRUGS (11)
  1. NEXIUM [Concomitant]
     Dosage: UNK
     Dates: start: 20101001
  2. TRAMADOL [Concomitant]
     Dosage: UNK
     Dates: start: 20060101
  3. VOLTAREN [Concomitant]
     Dosage: UNK
     Dates: start: 20041101
  4. PERI-COLACE [Concomitant]
  5. ASPIRIN [Concomitant]
     Dosage: UNK
     Dates: start: 20101201
  6. DOXYCYCLINE [Concomitant]
     Dosage: UNK
     Dates: start: 20110901
  7. ALBUTEROL [Concomitant]
     Dosage: UNK
     Dates: start: 19800101
  8. ADRIAMYCIN PFS [Suspect]
     Indication: ENDOMETRIAL CANCER
     Dosage: 105 MG, UNK
     Route: 042
     Dates: start: 20111203
  9. FLOVENT [Concomitant]
     Dosage: UNK
     Dates: start: 19800101
  10. METOPROLOL TARTRATE [Concomitant]
     Dosage: UNK
     Dates: start: 20101201
  11. FLUNISOLIDE [Concomitant]
     Dosage: UNK
     Dates: start: 20111101

REACTIONS (13)
  - PYREXIA [None]
  - BLOOD CREATININE INCREASED [None]
  - HAEMOGLOBIN DECREASED [None]
  - ANAEMIA [None]
  - ATRIAL FIBRILLATION [None]
  - URINARY TRACT INFECTION [None]
  - CONFUSIONAL STATE [None]
  - DEHYDRATION [None]
  - STOMATITIS [None]
  - HYPONATRAEMIA [None]
  - PNEUMONIA [None]
  - DYSPNOEA [None]
  - FATIGUE [None]
